FAERS Safety Report 17953093 (Version 1)
Quarter: 2020Q2

REPORT INFORMATION
  Report Type: Spontaneous
  Country: CN (occurrence: CN)
  Receive Date: 20200627
  Receipt Date: 20200627
  Transmission Date: 20200714
  Serious: Yes (Hospitalization)
  Sender: FDA-Public Use
  Company Number: CN-JNJFOC-20200627089

PATIENT
  Age: 51 Year
  Sex: Male

DRUGS (3)
  1. IBUPROFEN. [Suspect]
     Active Substance: IBUPROFEN
     Indication: PAIN IN EXTREMITY
     Route: 065
  2. IBUPROFEN. [Suspect]
     Active Substance: IBUPROFEN
     Indication: BACK PAIN
     Dosage: 0.2G TWICE OR THRICE DAILY.
     Route: 065
     Dates: end: 20170702
  3. IBUPROFEN. [Suspect]
     Active Substance: IBUPROFEN
     Indication: PAIN

REACTIONS (5)
  - End stage renal disease [Recovered/Resolved]
  - Pancreatitis acute [Unknown]
  - Nephropathy toxic [Recovered/Resolved]
  - Product administered to patient of inappropriate age [Recovered/Resolved]
  - Chronic gastritis [Unknown]
